FAERS Safety Report 9143944 (Version 1)
Quarter: 2013Q1

REPORT INFORMATION
  Report Type: Spontaneous
  Country: US (occurrence: US)
  Receive Date: 20130306
  Receipt Date: 20130306
  Transmission Date: 20140127
  Serious: Yes (Other)
  Sender: FDA-Public Use
  Company Number: US-ASTRAZENECA-2013SE12868

PATIENT
  Age: 58 Year
  Sex: Male

DRUGS (4)
  1. CRESTOR [Suspect]
     Route: 048
     Dates: start: 2011
  2. SYMBICORT [Suspect]
     Indication: ASTHMA
     Dosage: 160 MCG TWO PUFFS BID
     Route: 055
     Dates: start: 20130222
  3. UNKNOWN MEDICATIONS [Concomitant]
  4. MEDICATION FOR PAIN [Concomitant]
     Indication: PAIN

REACTIONS (5)
  - Gallbladder perforation [Unknown]
  - Nasopharyngitis [Recovered/Resolved]
  - Asthma [Unknown]
  - Cardiac disorder [Unknown]
  - Arthralgia [Unknown]
